FAERS Safety Report 4943486-6 (Version None)
Quarter: 2006Q1

REPORT INFORMATION
  Report Type: 
  Country: None (occurrence: None)
  Receive Date: 20060314
  Receipt Date: 20060306
  Transmission Date: 20060701
  Serious: Yes (Death, Hospitalization)
  Sender: FDA-Public Use
  Company Number: US-JNJFOC-20060104004

PATIENT
  Sex: Female
  Weight: 49.9 kg

DRUGS (2)
  1. RAZADYNE [Suspect]
     Route: 048
     Dates: start: 20021101, end: 20050801
  2. TOPAMAX [Suspect]
     Indication: TREMOR
     Route: 048
     Dates: start: 20021101, end: 20050801

REACTIONS (2)
  - GASTROINTESTINAL OBSTRUCTION [None]
  - SEPSIS [None]
